FAERS Safety Report 13114236 (Version 5)
Quarter: 2017Q3

REPORT INFORMATION
  Report Type: Spontaneous
  Country: US (occurrence: US)
  Receive Date: 20170113
  Receipt Date: 20170712
  Transmission Date: 20171127
  Serious: Yes (Hospitalization, Other)
  Sender: FDA-Public Use
  Company Number: US-PFIZER INC-2017014083

PATIENT
  Age: 66 Year
  Sex: Male
  Weight: 104 kg

DRUGS (3)
  1. XELJANZ [Suspect]
     Active Substance: TOFACITINIB CITRATE
     Indication: RHEUMATOID ARTHRITIS
     Dosage: 5 MG, 2X/DAY
     Route: 048
  2. METHOTREXATE. [Suspect]
     Active Substance: METHOTREXATE
     Dosage: 10 MG (4 TABLETS), ONCE A WEEKL
     Route: 048
  3. METHOTREXATE. [Suspect]
     Active Substance: METHOTREXATE
     Indication: RHEUMATOID ARTHRITIS
     Dosage: 22.5 MG (9 TABLETS), UNK
     Route: 048

REACTIONS (10)
  - Wound haemorrhage [Unknown]
  - Tendon rupture [Not Recovered/Not Resolved]
  - Fall [Unknown]
  - Muscle strain [Not Recovered/Not Resolved]
  - Pyrexia [Unknown]
  - Fall [Unknown]
  - Wound [Not Recovered/Not Resolved]
  - Chronic obstructive pulmonary disease [Unknown]
  - Staphylococcal infection [Unknown]
  - Muscle contusion [Unknown]

NARRATIVE: CASE EVENT DATE: 20161212
